FAERS Safety Report 16042926 (Version 1)
Quarter: 2019Q2

REPORT INFORMATION
  Report Type: Spontaneous
  Country: US (occurrence: US)
  Receive Date: 20190306
  Receipt Date: 20190306
  Transmission Date: 20190711
  Serious: Yes (Disabling)
  Sender: FDA-Public Use
  Company Number: None

PATIENT
  Age: 38 Year
  Sex: Female
  Weight: 126 kg

DRUGS (10)
  1. PRISTIQ EXTENDED-RELEASE [Concomitant]
     Active Substance: DESVENLAFAXINE SUCCINATE
  2. ACIPHEX [Concomitant]
     Active Substance: RABEPRAZOLE SODIUM
  3. RANITIDINE. [Concomitant]
     Active Substance: RANITIDINE
  4. METOPROLOL. [Concomitant]
     Active Substance: METOPROLOL
  5. MAXALT [Concomitant]
     Active Substance: RIZATRIPTAN BENZOATE
  6. CYCLOBENZABRINE [Concomitant]
  7. GABAPENTIN. [Suspect]
     Active Substance: GABAPENTIN
     Indication: RADICULAR PAIN
     Dates: start: 20190213, end: 20190301
  8. ALPRAZOLAM. [Concomitant]
     Active Substance: ALPRAZOLAM
  9. TYLENOL [Concomitant]
     Active Substance: ACETAMINOPHEN
  10. IBUPROFEN. [Concomitant]
     Active Substance: IBUPROFEN

REACTIONS (13)
  - Mental status changes [None]
  - Hypokalaemia [None]
  - Muscular weakness [None]
  - Drug withdrawal syndrome [None]
  - Feeling abnormal [None]
  - Somnolence [None]
  - Incoherent [None]
  - Confusional state [None]
  - Tremor [None]
  - Hypotonia [None]
  - Muscle fatigue [None]
  - Sedation [None]
  - Fine motor skill dysfunction [None]

NARRATIVE: CASE EVENT DATE: 20190301
